FAERS Safety Report 20710952 (Version 2)
Quarter: 2022Q2

REPORT INFORMATION
  Report Type: Spontaneous
  Country: CZ (occurrence: CZ)
  Receive Date: 20220414
  Receipt Date: 20220420
  Transmission Date: 20220721
  Serious: Yes (Hospitalization)
  Sender: FDA-Public Use
  Company Number: CZ-ABBVIE-22K-217-4358225-00

PATIENT
  Age: 21 Year
  Sex: Male

DRUGS (4)
  1. HUMIRA [Suspect]
     Active Substance: ADALIMUMAB
     Indication: Juvenile idiopathic arthritis
     Route: 058
     Dates: start: 2013, end: 2017
  2. SULFASALAZINE [Concomitant]
     Active Substance: SULFASALAZINE
     Indication: Juvenile idiopathic arthritis
     Dates: start: 2013, end: 2017
  3. SULFASALAZINE [Concomitant]
     Active Substance: SULFASALAZINE
     Indication: Juvenile idiopathic arthritis
     Dosage: 2 X 3 TABLETS PER DAY
  4. SULFASALAZINE [Concomitant]
     Active Substance: SULFASALAZINE

REACTIONS (4)
  - Polyarthritis [Unknown]
  - Juvenile idiopathic arthritis [Unknown]
  - Pain [Unknown]
  - Drug ineffective [Unknown]

NARRATIVE: CASE EVENT DATE: 20170101
